FAERS Safety Report 9262484 (Version 2)
Quarter: 2013Q2

REPORT INFORMATION
  Report Type: Spontaneous
  Country: US (occurrence: US)
  Receive Date: 20130430
  Receipt Date: 20130520
  Transmission Date: 20140414
  Serious: Yes (Other)
  Sender: FDA-Public Use
  Company Number: US-ELI_LILLY_AND_COMPANY-US201304005434

PATIENT
  Sex: Female

DRUGS (7)
  1. CYMBALTA [Suspect]
     Indication: DEPRESSION
     Dosage: 60 MG, QD
  2. CYMBALTA [Suspect]
     Dosage: 30 MG, QD
  3. BUSPIRONE [Concomitant]
     Dosage: UNK, BID
  4. ROBINUL [Concomitant]
     Dosage: UNK, PRN
  5. AMBIEN [Concomitant]
  6. HYDROXYZINE [Concomitant]
     Dosage: UNK, TID
  7. HYDROXYZINE [Concomitant]
     Dosage: UNK, PRN

REACTIONS (5)
  - Hepatitis C [Unknown]
  - Gastroenteritis viral [Unknown]
  - Chromaturia [Unknown]
  - Dysuria [Unknown]
  - Dry mouth [Unknown]
